FAERS Safety Report 15654063 (Version 1)
Quarter: 2018Q4

REPORT INFORMATION
  Report Type: Spontaneous
  Country: US (occurrence: US)
  Receive Date: 20181125
  Receipt Date: 20181125
  Transmission Date: 20190205
  Serious: Yes (Hospitalization)
  Sender: FDA-Public Use
  Company Number: None

PATIENT
  Age: 93 Year
  Sex: Female
  Weight: 48.7 kg

DRUGS (1)
  1. PRADAXA [Suspect]
     Active Substance: DABIGATRAN ETEXILATE MESYLATE
     Indication: ATRIAL FIBRILLATION
     Route: 048
     Dates: end: 20181119

REACTIONS (6)
  - Rectal haemorrhage [None]
  - Computerised tomogram abnormal [None]
  - Asthenia [None]
  - Gastrointestinal stromal tumour [None]
  - Fall [None]
  - Necrosis [None]

NARRATIVE: CASE EVENT DATE: 20181119
